FAERS Safety Report 8170391-7 (Version None)
Quarter: 2012Q1

REPORT INFORMATION
  Report Type: 
  Country: None (occurrence: None)
  Receive Date: 20120228
  Receipt Date: 20120214
  Transmission Date: 20120608
  Serious: Yes (Other)
  Sender: FDA-Public Use
  Company Number: US-ELI_LILLY_AND_COMPANY-US201202004500

PATIENT
  Age: 41 Year
  Sex: Female

DRUGS (5)
  1. FOLIC ACID [Concomitant]
  2. IMITREX [Concomitant]
     Indication: MIGRAINE
     Dosage: UNK, PRN
  3. ALLEGRA [Concomitant]
  4. CYMBALTA [Suspect]
     Indication: MAJOR DEPRESSION
     Dosage: 60 MG, QD
  5. FLONASE [Concomitant]

REACTIONS (3)
  - ABORTION SPONTANEOUS [None]
  - FOETAL EXPOSURE DURING PREGNANCY [None]
  - NAUSEA [None]
